FAERS Safety Report 9747881 (Version 1)
Quarter: 2013Q4

REPORT INFORMATION
  Report Type: Spontaneous
  Country: DE (occurrence: None)
  Receive Date: 20131206
  Receipt Date: 20131206
  Transmission Date: 20140711
  Serious: Yes (Other)
  Sender: FDA-Public Use
  Company Number: FK201305104

PATIENT
  Age: 12 Year
  Sex: Male

DRUGS (1)
  1. PIPERACILLIN / TAZOBACTAM [Suspect]
     Indication: LUNG INFECTION

REACTIONS (6)
  - Drug reaction with eosinophilia and systemic symptoms [None]
  - Thrombocytopenia [None]
  - Eosinophilia [None]
  - Blood lactate dehydrogenase increased [None]
  - Alanine aminotransferase increased [None]
  - Aspartate aminotransferase increased [None]
